FAERS Safety Report 6056179-1 (Version None)
Quarter: 2009Q1

REPORT INFORMATION
  Report Type: 
  Country: None (occurrence: None)
  Receive Date: 20090129
  Receipt Date: 20090128
  Transmission Date: 20090719
  Serious: Yes (Hospitalization)
  Sender: FDA-Public Use
  Company Number: US-BAYER-US-2006-001859

PATIENT
  Age: 58 Year
  Sex: Female

DRUGS (1)
  1. BETASERON [Suspect]
     Indication: RELAPSING-REMITTING MULTIPLE SCLEROSIS
     Dosage: TOTAL DAILY DOSE: 8 MIU
     Route: 058
     Dates: start: 19960122

REACTIONS (8)
  - BALANCE DISORDER [None]
  - FALL [None]
  - GAIT DISTURBANCE [None]
  - HOSPITALISATION [None]
  - MONOPLEGIA [None]
  - MULTIPLE SCLEROSIS [None]
  - PAIN IN EXTREMITY [None]
  - TRAUMATIC FRACTURE [None]
